FAERS Safety Report 5675398-7 (Version None)
Quarter: 2008Q1

REPORT INFORMATION
  Report Type: 
  Country: None (occurrence: None)
  Receive Date: 20080320
  Receipt Date: 20080317
  Transmission Date: 20080703
  Serious: Yes (Hospitalization)
  Sender: FDA-Public Use
  Company Number: FR-MERCK-0803FRA00023

PATIENT
  Age: 56 Year
  Sex: Male

DRUGS (5)
  1. COZAAR [Suspect]
     Indication: HYPERTENSION
     Route: 048
     Dates: start: 20070601, end: 20070901
  2. PREDNISONE [Concomitant]
     Indication: PSORIASIS
     Route: 048
     Dates: start: 20060801
  3. PREDNISONE [Concomitant]
     Indication: MUSCULOSKELETAL PAIN
     Route: 048
     Dates: start: 20060801
  4. LEFLUNOMIDE [Concomitant]
     Indication: PSORIASIS
     Route: 048
     Dates: start: 20060801
  5. LEFLUNOMIDE [Concomitant]
     Indication: MUSCULOSKELETAL PAIN
     Route: 048
     Dates: start: 20060801

REACTIONS (3)
  - PSORIASIS [None]
  - RASH ERYTHEMATOUS [None]
  - SKIN EXFOLIATION [None]
